FAERS Safety Report 6164284-4 (Version None)
Quarter: 2009Q2

REPORT INFORMATION
  Report Type: 
  Country: None (occurrence: None)
  Receive Date: 20090422
  Receipt Date: 20090410
  Transmission Date: 20091009
  Serious: Yes (Other)
  Sender: FDA-Public Use
  Company Number: GB-WATSON-2008-06676

PATIENT
  Sex: Female
  Weight: 52.154 kg

DRUGS (1)
  1. KENTERA (WATSON LABORATORIES) [Suspect]
     Indication: URGE INCONTINENCE
     Dosage: PATCH Q 4 DAYS
     Route: 062
     Dates: start: 20080201, end: 20080801

REACTIONS (3)
  - FATIGUE [None]
  - MUSCULAR WEAKNESS [None]
  - PARALYSIS [None]
